FAERS Safety Report 7943090-1 (Version None)
Quarter: 2011Q4

REPORT INFORMATION
  Report Type: 
  Country: None (occurrence: None)
  Receive Date: 20111128
  Receipt Date: 20111114
  Transmission Date: 20120403
  Serious: Yes (Other)
  Sender: FDA-Public Use
  Company Number: PHEH2011US009058

PATIENT
  Sex: Female

DRUGS (6)
  1. LEXAPRO [Concomitant]
  2. METAPROTERENOL [Concomitant]
  3. TASIGNA [Suspect]
     Dosage: 400 MG, DAILY
     Route: 048
     Dates: start: 20060710, end: 20111001
  4. TASIGNA [Suspect]
     Indication: CHRONIC MYELOID LEUKAEMIA
     Dosage: 400 MG, BID
     Route: 048
     Dates: start: 20060622, end: 20060707
  5. CLOPIDOGREL [Concomitant]
  6. CELEBREX [Concomitant]

REACTIONS (9)
  - NAUSEA [None]
  - PERIPHERAL ARTERIAL OCCLUSIVE DISEASE [None]
  - WEIGHT DECREASED [None]
  - HEADACHE [None]
  - DIARRHOEA [None]
  - DECREASED APPETITE [None]
  - RASH [None]
  - RED BLOOD CELL SEDIMENTATION RATE INCREASED [None]
  - BONE PAIN [None]
